FAERS Safety Report 7212036-6 (Version None)
Quarter: 2010Q4

REPORT INFORMATION
  Report Type: 
  Country: None (occurrence: None)
  Receive Date: 20101228
  Receipt Date: 20101217
  Transmission Date: 20110411
  Serious: Yes (Hospitalization)
  Sender: FDA-Public Use
  Company Number: DE_TT_10_00002/DE_NLSPPROD-NLSP000081

PATIENT
  Sex: Male

DRUGS (10)
  1. SAVENE (DEXRAZOXANE) [Suspect]
     Indication: EXTRAVASATION
     Dosage: DAY 1+2, 2000MG: DAY 3, 1000MG (NOT OTHERWISE SPECIFIED)
     Dates: start: 20100325, end: 20100327
  2. CYCLOPHOSPHAMIDE [Concomitant]
  3. DOXORUBICIN HCL [Concomitant]
  4. VINCRISTINE [Concomitant]
  5. PREDNISOLONE [Concomitant]
  6. MESNA [Concomitant]
  7. ONDANSETRON [Concomitant]
  8. METFORMIN [Concomitant]
  9. LYRICA [Concomitant]
  10. ARCOXIA [Concomitant]

REACTIONS (3)
  - DRUG INEFFECTIVE [None]
  - NECROSIS [None]
  - ULCER [None]
